FAERS Safety Report 24713007 (Version 1)
Quarter: 2024Q4

REPORT INFORMATION
  Report Type: Spontaneous
  Country: AU (occurrence: AU)
  Receive Date: 20241209
  Receipt Date: 20241209
  Transmission Date: 20250115
  Serious: Yes (Life-Threatening, Hospitalization, Other)
  Sender: ALEXION PHARMACEUTICALS
  Company Number: AU-ASTRAZENECA-202412OCE002157AU

PATIENT
  Age: 56 Year

DRUGS (32)
  1. ESOMEPRAZOLE [Suspect]
     Active Substance: ESOMEPRAZOLE
     Dosage: 40 MILLIGRAM, QD
     Route: 065
  2. ESOMEPRAZOLE [Suspect]
     Active Substance: ESOMEPRAZOLE
     Dosage: 40 MILLIGRAM, QD
     Route: 065
  3. ESOMEPRAZOLE [Suspect]
     Active Substance: ESOMEPRAZOLE
     Dosage: 40 MILLIGRAM, QD
     Route: 065
  4. ESOMEPRAZOLE [Suspect]
     Active Substance: ESOMEPRAZOLE
     Dosage: 40 MILLIGRAM, QD
     Route: 065
  5. COMIRNATY (TOZINAMERAN) [Suspect]
     Active Substance: TOZINAMERAN
     Indication: COVID-19 immunisation
     Dosage: UNK
     Route: 065
  6. COMIRNATY (TOZINAMERAN) [Suspect]
     Active Substance: TOZINAMERAN
     Dosage: UNK
     Route: 065
  7. NOVORAPID [Suspect]
     Active Substance: INSULIN ASPART
     Dosage: 15 INTERNATIONAL UNIT QD
     Route: 065
  8. NOVORAPID [Suspect]
     Active Substance: INSULIN ASPART
     Dosage: 15 INTERNATIONAL UNIT QD
     Route: 065
  9. ANASTROZOLE [Suspect]
     Active Substance: ANASTROZOLE
     Indication: Breast cancer
     Dosage: 1 MILLIGRAM
     Route: 065
  10. ANASTROZOLE [Suspect]
     Active Substance: ANASTROZOLE
     Dosage: 1 MILLIGRAM
     Route: 065
  11. ANASTROZOLE [Suspect]
     Active Substance: ANASTROZOLE
     Dosage: 1 MILLIGRAM
     Route: 065
  12. ANASTROZOLE [Suspect]
     Active Substance: ANASTROZOLE
     Dosage: 1 MILLIGRAM
     Route: 065
  13. APIXABAN [Suspect]
     Active Substance: APIXABAN
     Dosage: 10 MILLIGRAM, QD
     Route: 065
  14. APIXABAN [Suspect]
     Active Substance: APIXABAN
     Dosage: 10 MILLIGRAM, QD
     Route: 065
  15. FAMOTIDINE [Suspect]
     Active Substance: FAMOTIDINE
     Indication: Mast cell activation syndrome
     Dosage: 20 MILLIGRAM
     Route: 065
  16. FAMOTIDINE [Suspect]
     Active Substance: FAMOTIDINE
     Dosage: 20 MILLIGRAM
     Route: 065
  17. FAMOTIDINE [Suspect]
     Active Substance: FAMOTIDINE
     Dosage: 20 MILLIGRAM
     Route: 065
  18. FAMOTIDINE [Suspect]
     Active Substance: FAMOTIDINE
     Dosage: 20 MILLIGRAM
     Route: 065
  19. INSULIN GLARGINE [Suspect]
     Active Substance: INSULIN GLARGINE
     Dosage: 36 INTERNATIONAL UNIT QD
     Route: 065
  20. INSULIN GLARGINE [Suspect]
     Active Substance: INSULIN GLARGINE
     Dosage: 36 INTERNATIONAL UNIT QD
     Route: 065
  21. LORATADINE [Suspect]
     Active Substance: LORATADINE
     Indication: Mast cell activation syndrome
     Dosage: 40 MILLIGRAM, QD
     Route: 065
  22. LORATADINE [Suspect]
     Active Substance: LORATADINE
     Dosage: 40 MILLIGRAM, QD
     Route: 065
  23. METFORMIN HYDROCHLORIDE [Suspect]
     Active Substance: METFORMIN HYDROCHLORIDE
     Indication: Diabetes mellitus
     Dosage: 2 GRAM, QD
     Route: 065
  24. METFORMIN HYDROCHLORIDE [Suspect]
     Active Substance: METFORMIN HYDROCHLORIDE
     Dosage: 2 GRAM, QD
     Route: 065
  25. MONTELUKAST SODIUM [Suspect]
     Active Substance: MONTELUKAST\MONTELUKAST SODIUM
     Indication: Mast cell activation syndrome
     Dosage: 10 MILLIGRAM
     Route: 065
  26. MONTELUKAST SODIUM [Suspect]
     Active Substance: MONTELUKAST\MONTELUKAST SODIUM
     Dosage: 10 MILLIGRAM
     Route: 065
  27. PHENERGAN [Suspect]
     Active Substance: PROMETHAZINE HYDROCHLORIDE
     Indication: Local reaction
     Route: 065
  28. PHENERGAN [Suspect]
     Active Substance: PROMETHAZINE HYDROCHLORIDE
     Route: 065
  29. ROSUVASTATIN CALCIUM [Suspect]
     Active Substance: ROSUVASTATIN CALCIUM
     Dosage: 10 MILLIGRAM
     Route: 065
  30. ROSUVASTATIN CALCIUM [Suspect]
     Active Substance: ROSUVASTATIN CALCIUM
     Dosage: 10 MILLIGRAM
     Route: 065
  31. ALBUTEROL [Suspect]
     Active Substance: ALBUTEROL
     Route: 065
  32. ALBUTEROL [Suspect]
     Active Substance: ALBUTEROL
     Route: 065

REACTIONS (12)
  - Anaphylactic reaction [Recovering/Resolving]
  - COVID-19 [Unknown]
  - Human rhinovirus test positive [Unknown]
  - Mast cell activation syndrome [Recovering/Resolving]
  - Mouth haemorrhage [Unknown]
  - Pneumonia [Unknown]
  - Pneumonia haemophilus [Unknown]
  - Respiratory failure [Unknown]
  - Respiratory syncytial virus test positive [Unknown]
  - Tongue biting [Unknown]
  - Upper respiratory tract infection [Unknown]
  - Viral test positive [Unknown]
